FAERS Safety Report 4314784-4 (Version None)
Quarter: 2004Q1

REPORT INFORMATION
  Report Type: 
  Country: None (occurrence: None)
  Receive Date: 20040310
  Receipt Date: 20021226
  Transmission Date: 20041129
  Serious: Yes (Hospitalization)
  Sender: FDA-Public Use
  Company Number: 200214216EU

PATIENT
  Age: 67 Year
  Sex: Female
  Weight: 65 kg

DRUGS (9)
  1. LEFLUNOMIDE [Suspect]
     Indication: RHEUMATOID ARTHRITIS
     Route: 048
     Dates: start: 20020414, end: 20020517
  2. ENALAPRIL MALEATE [Concomitant]
  3. PREDNISONE [Concomitant]
  4. OMEPRAZOLE [Concomitant]
  5. ALENDRONATE SODIUM [Concomitant]
  6. CALCIUM [Concomitant]
  7. VITAMIN D [Concomitant]
  8. ACETAMINOPHEN [Concomitant]
  9. METHOTREXATE [Concomitant]

REACTIONS (5)
  - ANTINUCLEAR ANTIBODY POSITIVE [None]
  - DIARRHOEA [None]
  - HEPATIC ENZYME INCREASED [None]
  - HEPATITIS ACUTE [None]
  - OCULAR ICTERUS [None]
